FAERS Safety Report 9774187 (Version 1)
Quarter: 2013Q4

REPORT INFORMATION
  Report Type: Spontaneous
  Country: US (occurrence: US)
  Receive Date: 20131220
  Receipt Date: 20131220
  Transmission Date: 20140711
  Serious: Yes (Other)
  Sender: FDA-Public Use
  Company Number: US-JNJFOC-20131207558

PATIENT
  Sex: Female

DRUGS (6)
  1. REGULAR STRENGTH TYLENOL [Suspect]
     Route: 065
  2. REGULAR STRENGTH TYLENOL [Suspect]
     Indication: PRODUCT USED FOR UNKNOWN INDICATION
     Route: 065
     Dates: start: 198001, end: 200912
  3. TYLENOL PM [Suspect]
     Indication: PRODUCT USED FOR UNKNOWN INDICATION
     Route: 065
     Dates: start: 198001, end: 200912
  4. EXTRA STRENGTH TYLENOL [Suspect]
     Route: 065
  5. EXTRA STRENGTH TYLENOL [Suspect]
     Indication: PRODUCT USED FOR UNKNOWN INDICATION
     Route: 065
     Dates: start: 198001, end: 200912
  6. TYLENOL EXTRA STRENGTH NIGHTTIME [Suspect]
     Indication: PRODUCT USED FOR UNKNOWN INDICATION
     Route: 065
     Dates: start: 198001, end: 200912

REACTIONS (2)
  - Hepatic failure [Unknown]
  - Liver transplant [Unknown]
